FAERS Safety Report 17654577 (Version 2)
Quarter: 2020Q2

REPORT INFORMATION
  Report Type: Spontaneous
  Country: CA (occurrence: CA)
  Receive Date: 20200410
  Receipt Date: 20200516
  Transmission Date: 20200713
  Serious: Yes (Hospitalization, Other)
  Sender: FDA-Public Use
  Company Number: CA-SAMSUNG BIOEPIS-SB-2020-11992

PATIENT
  Age: 49 Year
  Sex: Female
  Weight: 55 kg

DRUGS (3)
  1. DESOXIMETASONE. [Concomitant]
     Active Substance: DESOXIMETASONE
     Indication: PRODUCT USED FOR UNKNOWN INDICATION
     Route: 055
  2. INFLIXIMAB [Suspect]
     Active Substance: INFLIXIMAB
     Indication: CROHN^S DISEASE
     Route: 042
  3. METHOTREXATE. [Concomitant]
     Active Substance: METHOTREXATE
     Indication: PRODUCT USED FOR UNKNOWN INDICATION
     Dosage: UNKNOWN
     Route: 065

REACTIONS (20)
  - Infusion site extravasation [Recovered/Resolved]
  - Nasopharyngitis [Recovered/Resolved]
  - Pulmonary mass [Recovered/Resolved]
  - Oropharyngeal pain [Recovered/Resolved]
  - Off label use [Recovered/Resolved]
  - Asthma [Recovered/Resolved]
  - Secretion discharge [Recovered/Resolved]
  - Inappropriate schedule of product administration [Recovered/Resolved]
  - Cough [Recovered/Resolved]
  - Faeces discoloured [Recovered/Resolved]
  - Weight increased [Recovered/Resolved]
  - Influenza [Recovered/Resolved]
  - Constipation [Recovered/Resolved]
  - Crohn^s disease [Recovered/Resolved]
  - Hallucination [Recovered/Resolved]
  - Malaise [Recovered/Resolved]
  - Fatigue [Recovered/Resolved]
  - Condition aggravated [Recovered/Resolved]
  - Infection [Recovered/Resolved]
  - Nasal congestion [Recovered/Resolved]
